FAERS Safety Report 6842506-1 (Version None)
Quarter: 2010Q3

REPORT INFORMATION
  Report Type: 
  Country: None (occurrence: None)
  Receive Date: 20100714
  Receipt Date: 20081206
  Transmission Date: 20110219
  Serious: Yes (Disabling, Other)
  Sender: FDA-Public Use
  Company Number: US-PFIZER INC-2007062946

PATIENT
  Sex: Female
  Weight: 54.4 kg

DRUGS (3)
  1. CHANTIX [Suspect]
     Dates: start: 20070712, end: 20071201
  2. ALL OTHER THERAPEUTIC PRODUCTS [Concomitant]
  3. DRUG, UNSPECIFIED [Concomitant]

REACTIONS (10)
  - DISABILITY [None]
  - FEELING ABNORMAL [None]
  - GASTROENTERITIS VIRAL [None]
  - HAEMOPTYSIS [None]
  - ILL-DEFINED DISORDER [None]
  - LUNG DISORDER [None]
  - NAUSEA [None]
  - PAROSMIA [None]
  - SOMNOLENCE [None]
  - VOMITING [None]
